FAERS Safety Report 21598378 (Version 2)
Quarter: 2022Q4

REPORT INFORMATION
  Report Type: Spontaneous
  Country: US (occurrence: US)
  Receive Date: 20221115
  Receipt Date: 20221125
  Transmission Date: 20230113
  Serious: Yes (Life-Threatening)
  Sender: FDA-Public Use
  Company Number: US-ABBVIE-4198695

PATIENT
  Age: 37 Year
  Sex: Female

DRUGS (3)
  1. ORIAHNN [Suspect]
     Active Substance: ELAGOLIX SODIUM\ESTRADIOL\NORETHINDRONE
     Indication: Abnormal uterine bleeding
     Dosage: UNKNOWN
     Route: 048
     Dates: start: 20221028, end: 20221104
  2. MIRENA [Suspect]
     Active Substance: LEVONORGESTREL
     Indication: Product used for unknown indication
     Dosage: UNKNOWN
     Route: 015
  3. ORIAHNN [Suspect]
     Active Substance: ELAGOLIX SODIUM\ESTRADIOL\NORETHINDRONE
     Indication: Abnormal uterine bleeding
     Dosage: UNKNOWN
     Route: 048
     Dates: start: 20221028, end: 20221104

REACTIONS (1)
  - Suicidal ideation [Unknown]
